FAERS Safety Report 7380996-9 (Version None)
Quarter: 2011Q1

REPORT INFORMATION
  Report Type: 
  Country: None (occurrence: None)
  Receive Date: 20110329
  Receipt Date: 20110328
  Transmission Date: 20110831
  Serious: No
  Sender: FDA-Public Use
  Company Number: US-TEVA-272884USA

PATIENT
  Sex: Female
  Weight: 118.04 kg

DRUGS (3)
  1. PLAN B ONE-STEP [Suspect]
     Indication: POST COITAL CONTRACEPTION
     Route: 048
     Dates: start: 20110301, end: 20110301
  2. XANAX [Concomitant]
     Indication: ANXIETY
     Route: 048
  3. DOXEPIN [Concomitant]
     Indication: INSOMNIA
     Route: 048

REACTIONS (4)
  - MENSTRUATION IRREGULAR [None]
  - PELVIC PAIN [None]
  - BACK PAIN [None]
  - BREAST TENDERNESS [None]
